FAERS Safety Report 7358657-1 (Version None)
Quarter: 2011Q1

REPORT INFORMATION
  Report Type: 
  Country: None (occurrence: None)
  Receive Date: 20110317
  Receipt Date: 20110307
  Transmission Date: 20110831
  Serious: Yes (Other)
  Sender: FDA-Public Use
  Company Number: PHHY2011TR18977

PATIENT
  Age: 33 Year
  Sex: Female

DRUGS (4)
  1. LARGOPEN [Suspect]
     Indication: ACTINOMYCOSIS
     Dosage: 1 G, BID
  2. CEFTRIAXONE [Suspect]
     Indication: ACTINOMYCOSIS
     Dosage: 1 G, QD
  3. CEFTRIAXONE [Suspect]
     Indication: APPENDICITIS
  4. LARGOPEN [Suspect]
     Indication: APPENDICITIS

REACTIONS (1)
  - GASTROINTESTINAL CANDIDIASIS [None]
